FAERS Safety Report 17306510 (Version 1)
Quarter: 2020Q1

REPORT INFORMATION
  Report Type: Spontaneous
  Country: US (occurrence: US)
  Receive Date: 20200123
  Receipt Date: 20200123
  Transmission Date: 20200409
  Serious: Yes (Death)
  Sender: FDA-Public Use
  Company Number: US-PERRIGO-20US000826

PATIENT
  Age: 13 Year
  Sex: Female

DRUGS (4)
  1. CLINDAMYCIN PALMITATE HYDROCHLORIDE. [Suspect]
     Active Substance: CLINDAMYCIN PALMITATE HYDROCHLORIDE
     Indication: SUSPECTED SUICIDE
     Dosage: UNKNOWN, UNKNOWN
     Route: 048
  2. ESOMEPRAZOLE MAGNESIUM. [Suspect]
     Active Substance: ESOMEPRAZOLE MAGNESIUM
     Indication: SUSPECTED SUICIDE
     Dosage: UNKNOWN, UNKNOWN
     Route: 048
  3. HYDROXYCHLOROQUINE [Suspect]
     Active Substance: HYDROXYCHLOROQUINE
     Indication: SUSPECTED SUICIDE
     Dosage: UNKNOWN, UNKNOWN
     Route: 048
  4. CYCLOBENZAPRINE. [Suspect]
     Active Substance: CYCLOBENZAPRINE
     Indication: SUSPECTED SUICIDE
     Dosage: UNKNOWN, UNKNOWN
     Route: 048

REACTIONS (1)
  - Death [Fatal]

NARRATIVE: CASE EVENT DATE: 2018
